FAERS Safety Report 14725691 (Version 1)
Quarter: 2018Q2

REPORT INFORMATION
  Report Type: Spontaneous
  Country: GB (occurrence: GB)
  Receive Date: 20180406
  Receipt Date: 20180406
  Transmission Date: 20180711
  Serious: Yes (Other)
  Sender: FDA-Public Use
  Company Number: GB-TEVA-2018-GB-878039

PATIENT
  Age: 42 Year
  Sex: Male
  Weight: 110 kg

DRUGS (2)
  1. WARFARIN [Suspect]
     Active Substance: WARFARIN
     Indication: ANTICOAGULANT THERAPY
     Route: 065
  2. INFLUENZA VACCINE (SPLIT VIRION, INACTIVATED) [Interacting]
     Active Substance: INFLUENZA VIRUS VACCINE
     Indication: IMMUNISATION
     Route: 051
     Dates: start: 20180129, end: 20180129

REACTIONS (5)
  - Drug interaction [Unknown]
  - Epistaxis [Unknown]
  - International normalised ratio increased [Not Recovered/Not Resolved]
  - Dizziness [Unknown]
  - Blood urine present [Unknown]

NARRATIVE: CASE EVENT DATE: 20180129
